FAERS Safety Report 10013781 (Version 2)
Quarter: 2014Q4

REPORT INFORMATION
  Report Type: Spontaneous
  Country: US (occurrence: US)
  Receive Date: 20140316
  Receipt Date: 20141111
  Transmission Date: 20150528
  Serious: Yes (Hospitalization)
  Sender: FDA-Public Use
  Company Number: US-BAYER-2014-039585

PATIENT
  Age: 24 Year
  Sex: Female
  Weight: 66 kg

DRUGS (1)
  1. MIRENA [Suspect]
     Active Substance: LEVONORGESTREL
     Indication: CONTRACEPTION
     Dosage: 20 MCG/24HR, CONT
     Route: 015
     Dates: start: 200809, end: 20120306

REACTIONS (8)
  - Injury [None]
  - Vaginal haemorrhage [None]
  - Adenomyosis [None]
  - Uterine perforation [None]
  - Medical device complication [None]
  - Emotional distress [None]
  - Endometriosis [None]
  - Pain [None]

NARRATIVE: CASE EVENT DATE: 2012
